FAERS Safety Report 7048901-2 (Version None)
Quarter: 2010Q4

REPORT INFORMATION
  Report Type: 
  Country: None (occurrence: None)
  Receive Date: 20101018
  Receipt Date: 20101006
  Transmission Date: 20110411
  Serious: Yes (Hospitalization)
  Sender: FDA-Public Use
  Company Number: ES-ELI_LILLY_AND_COMPANY-ES201010001049

PATIENT
  Sex: Female
  Weight: 69.7 kg

DRUGS (11)
  1. FORTEO [Suspect]
     Indication: OSTEOPOROSIS
     Dosage: 20 UG, DAILY (1/D)
     Route: 058
     Dates: start: 20100722, end: 20100904
  2. DIANBEN 850 [Concomitant]
     Indication: DIABETES MELLITUS
     Dosage: 850 MG, 2/D
     Route: 048
  3. ASPIRIN [Concomitant]
     Indication: CEREBRAL ARTERY EMBOLISM
     Dosage: 300 MG, DAILY (1/D)
     Route: 048
  4. ATARAX [Concomitant]
     Indication: PSORIASIS
     Dosage: 1 D/F, DAILY (1/D)
     Route: 048
  5. METOTREXATE [Concomitant]
     Indication: PSORIATIC ARTHROPATHY
     Dosage: 4 D/F, WEEKLY (1/W)
     Route: 048
  6. OMEPRAZOLE [Concomitant]
     Indication: ABDOMINAL DISCOMFORT
     Dosage: 20 MG, DAILY (1/D)
     Route: 048
  7. LORAZEPAM [Concomitant]
     Indication: SLEEP DISORDER
     Dosage: 1 MG, DAILY (1/D)
     Route: 048
  8. AREMIS [Concomitant]
     Indication: EMBOLISM ARTERIAL
     Dosage: 50 MG, DAILY (1/D)
     Route: 048
  9. HYDROMORPHONE HCL [Concomitant]
     Indication: PAIN
     Dosage: 16 MG, DAILY (1/D)
     Route: 048
  10. NOLOTIL [Concomitant]
     Indication: PAIN
     Dosage: UNK, AS NEEDED
     Route: 048
  11. HIDROFEROL [Concomitant]
     Dosage: 1 D/F, 8 TO 10 DAYS
     Route: 048

REACTIONS (2)
  - FALL [None]
  - UPPER LIMB FRACTURE [None]
